FAERS Safety Report 26204574 (Version 1)
Quarter: 2025Q4

REPORT INFORMATION
  Report Type: Spontaneous
  Country: US (occurrence: US)
  Receive Date: 20251227
  Receipt Date: 20251227
  Transmission Date: 20260117
  Serious: No
  Sender: CELLTRION
  Company Number: US-CELLTRION INC.-2025US039183

PATIENT

DRUGS (1)
  1. RITUXIMAB [Suspect]
     Active Substance: RITUXIMAB
     Indication: Lupus nephritis
     Dosage: 1 G IV TWO WEEKS APART FOR TWO DOSES WAS INITIATED IN JUNE 2023
     Route: 042
     Dates: start: 202306

REACTIONS (1)
  - Drug effective for unapproved indication [Unknown]
